FAERS Safety Report 8479355-7 (Version None)
Quarter: 2012Q2

REPORT INFORMATION
  Report Type: 
  Country: None (occurrence: None)
  Receive Date: 20120629
  Receipt Date: 20120621
  Transmission Date: 20120825
  Serious: Yes (Death, Other)
  Sender: FDA-Public Use
  Company Number: IT-CELGENEUS-083-21880-12063283

PATIENT

DRUGS (3)
  1. REVLIMID [Suspect]
     Indication: MULTIPLE MYELOMA
     Dosage: 25 MILLIGRAM
     Route: 048
  2. DOXORUBICIN HCL [Suspect]
     Indication: MULTIPLE MYELOMA
     Dosage: 300 MILLIGRAM/SQ. METER
     Route: 065
  3. DEXAMETHASONE [Suspect]
     Indication: MULTIPLE MYELOMA
     Dosage: 20 MILLIGRAM
     Route: 065

REACTIONS (12)
  - DEEP VEIN THROMBOSIS [None]
  - FEBRILE NEUTROPENIA [None]
  - MYELOMA RECURRENCE [None]
  - STEM CELL TRANSPLANT [None]
  - NEUTROPENIA [None]
  - MULTIPLE MYELOMA [None]
  - ANAEMIA [None]
  - RASH [None]
  - INFECTION [None]
  - NEUROPATHY PERIPHERAL [None]
  - PYREXIA [None]
  - THROMBOCYTOPENIA [None]
